FAERS Safety Report 23490541 (Version 2)
Quarter: 2024Q3

REPORT INFORMATION
  Report Type: Spontaneous
  Country: US (occurrence: US)
  Receive Date: 20240206
  Receipt Date: 20240703
  Transmission Date: 20241017
  Serious: No
  Sender: ROCHE
  Company Number: US-ROCHE-3478332

PATIENT
  Sex: Male
  Weight: 29.94 kg

DRUGS (2)
  1. NUTROPIN AQ [Suspect]
     Active Substance: SOMATROPIN
     Indication: Hypopituitarism
     Route: 058
     Dates: start: 202007
  2. NUTROPIN AQ [Suspect]
     Active Substance: SOMATROPIN
     Indication: Hypopituitarism
     Route: 058
     Dates: start: 20230225

REACTIONS (6)
  - Underdose [Unknown]
  - Product complaint [Unknown]
  - Device malfunction [Unknown]
  - No adverse event [Unknown]
  - Drug delivery system malfunction [Unknown]
  - Product quality issue [Unknown]
